FAERS Safety Report 21066469 (Version 1)
Quarter: 2022Q3

REPORT INFORMATION
  Report Type: Spontaneous
  Country: US (occurrence: None)
  Receive Date: 20220711
  Receipt Date: 20220711
  Transmission Date: 20221027
  Serious: No
  Sender: FDA-Public Use
  Company Number: US-Eisai Medical Research-EC-2022-117500

PATIENT
  Age: 64 Year
  Sex: Female

DRUGS (2)
  1. DAYVIGO [Suspect]
     Active Substance: LEMBOREXANT
     Indication: Insomnia
     Route: 048
     Dates: start: 2021, end: 202204
  2. DAYVIGO [Suspect]
     Active Substance: LEMBOREXANT
     Route: 048
     Dates: start: 20220610, end: 202206

REACTIONS (2)
  - Drug ineffective [Recovered/Resolved]
  - Product quality issue [Recovered/Resolved]

NARRATIVE: CASE EVENT DATE: 20220601
